FAERS Safety Report 25002030 (Version 1)
Quarter: 2025Q1

REPORT INFORMATION
  Report Type: Spontaneous
  Country: IN (occurrence: IN)
  Receive Date: 20250224
  Receipt Date: 20250224
  Transmission Date: 20250409
  Serious: Yes (Other)
  Sender: TWI PHARMACEUTICALS
  Company Number: IN-TWI PHARMACEUTICAL, INC-20250200536

PATIENT
  Age: 41 Year
  Sex: Male

DRUGS (6)
  1. FLUPHENAZINE HYDROCHLORIDE [Suspect]
     Active Substance: FLUPHENAZINE HYDROCHLORIDE
     Indication: Ocular albinism
     Route: 065
  2. FLUPHENAZINE HYDROCHLORIDE [Suspect]
     Active Substance: FLUPHENAZINE HYDROCHLORIDE
     Indication: Schizophrenia
  3. FLUPHENAZINE HYDROCHLORIDE [Suspect]
     Active Substance: FLUPHENAZINE HYDROCHLORIDE
     Indication: Albinism
  4. RISPERIDONE [Concomitant]
     Active Substance: RISPERIDONE
     Indication: Schizophrenia
     Route: 065
  5. RISPERIDONE [Concomitant]
     Active Substance: RISPERIDONE
     Indication: Ocular albinism
  6. RISPERIDONE [Concomitant]
     Active Substance: RISPERIDONE
     Indication: Albinism

REACTIONS (1)
  - Electrocardiogram QT prolonged [Unknown]
